FAERS Safety Report 21420776 (Version 2)
Quarter: 2022Q4

REPORT INFORMATION
  Report Type: Spontaneous
  Country: US (occurrence: US)
  Receive Date: 20221007
  Receipt Date: 20221116
  Transmission Date: 20230113
  Serious: Yes (Other)
  Sender: FDA-Public Use
  Company Number: US-SA-SAC20221003001685

PATIENT
  Age: 28 Year

DRUGS (1)
  1. ZANTAC [Suspect]
     Active Substance: RANITIDINE HYDROCHLORIDE
     Dosage: 150 MG, QW
     Dates: start: 201201, end: 201712

REACTIONS (1)
  - Hepatic cancer stage I [Not Recovered/Not Resolved]

NARRATIVE: CASE EVENT DATE: 20170301
